FAERS Safety Report 9203916 (Version 3)
Quarter: 2013Q2

REPORT INFORMATION
  Report Type: Spontaneous
  Country: JP (occurrence: JP)
  Receive Date: 20130402
  Receipt Date: 20130408
  Transmission Date: 20140414
  Serious: Yes (Hospitalization)
  Sender: FDA-Public Use
  Company Number: JP-EISAI INC-E2020-12161-SPO-JP

PATIENT
  Age: 80 Year
  Sex: Male

DRUGS (10)
  1. ARICEPT [Suspect]
     Indication: COGNITIVE DISORDER
     Route: 048
     Dates: start: 20130302, end: 20130328
  2. MEMARY [Suspect]
     Indication: COGNITIVE DISORDER
     Route: 048
     Dates: start: 20130202, end: 20130301
  3. MEMARY [Suspect]
     Route: 048
     Dates: start: 20130302, end: 20130401
  4. YOKUKANSAN [Concomitant]
     Indication: COGNITIVE DISORDER
     Route: 048
     Dates: start: 20121010, end: 20130401
  5. EXELON [Concomitant]
     Indication: COGNITIVE DISORDER
     Route: 048
     Dates: start: 20121119, end: 20121206
  6. EXELON [Concomitant]
     Route: 048
     Dates: start: 20121207, end: 20121227
  7. EXELON [Concomitant]
     Route: 048
     Dates: start: 20121228, end: 20130201
  8. EXELON [Concomitant]
     Route: 048
     Dates: start: 20130202, end: 20130302
  9. GINKGO LEAF EXTRACT [Concomitant]
     Indication: COGNITIVE DISORDER
     Route: 048
     Dates: start: 20121010, end: 20130401
  10. JUVELA [Concomitant]
     Indication: COGNITIVE DISORDER
     Route: 048
     Dates: start: 20121010, end: 20130401

REACTIONS (1)
  - Pancytopenia [Not Recovered/Not Resolved]
